FAERS Safety Report 5298005-4 (Version None)
Quarter: 2007Q2

REPORT INFORMATION
  Report Type: 
  Country: None (occurrence: None)
  Receive Date: 20070416
  Receipt Date: 20070403
  Transmission Date: 20071010
  Serious: Yes (Hospitalization)
  Sender: FDA-Public Use
  Company Number: DE-ROCHE-491119

PATIENT
  Age: 63 Year
  Sex: Male

DRUGS (2)
  1. INTERFERON ALFA [Suspect]
     Route: 065
  2. CITALOPRAM HYDROBROMIDE [Concomitant]
     Indication: ANTIDEPRESSANT THERAPY

REACTIONS (2)
  - DEPRESSION [None]
  - SOMATOFORM DISORDER [None]
